FAERS Safety Report 9170086 (Version 1)
Quarter: 2013Q1

REPORT INFORMATION
  Report Type: Spontaneous
  Country: US (occurrence: None)
  Receive Date: 20130307
  Receipt Date: 20130307
  Transmission Date: 20140127
  Serious: Yes (Other)
  Sender: FDA-Public Use
  Company Number: TPA2012A04140

PATIENT
  Age: 62 Year
  Sex: Male
  Weight: 136.08 kg

DRUGS (3)
  1. ACTOS (PIOGLITAZONE HYDROCHLORIDE) [Suspect]
     Indication: TYPE 2 DIABETES MELLITUS
     Dates: start: 2008, end: 201003
  2. METFORMIN [Concomitant]
  3. NOVOLOG MIX 70/30 [Concomitant]

REACTIONS (1)
  - Bladder cancer [None]
